FAERS Safety Report 6643819-9 (Version None)
Quarter: 2010Q1

REPORT INFORMATION
  Report Type: 
  Country: None (occurrence: None)
  Receive Date: 20100322
  Receipt Date: 20100312
  Transmission Date: 20100710
  Serious: Yes (Other)
  Sender: FDA-Public Use
  Company Number: JP-JNJFOC-20100304535

PATIENT

DRUGS (1)
  1. FENTANYL CITRATE [Suspect]
     Indication: PAIN
     Route: 062

REACTIONS (2)
  - ALTERED STATE OF CONSCIOUSNESS [None]
  - TREATMENT NONCOMPLIANCE [None]
